FAERS Safety Report 5293513-4 (Version None)
Quarter: 2007Q2

REPORT INFORMATION
  Report Type: 
  Country: None (occurrence: None)
  Receive Date: 20070411
  Receipt Date: 20070405
  Transmission Date: 20071010
  Serious: Yes (Hospitalization, Other)
  Sender: FDA-Public Use
  Company Number: CA-GLAXOSMITHKLINE-A0646636A

PATIENT
  Age: 43 Year
  Sex: Male

DRUGS (1)
  1. PAXIL [Suspect]
     Indication: DEPRESSION
     Dosage: 15MG PER DAY
     Route: 048
     Dates: start: 20010101, end: 20070301

REACTIONS (9)
  - AGGRESSION [None]
  - AGITATION [None]
  - DRUG WITHDRAWAL SYNDROME [None]
  - HEADACHE [None]
  - LIBIDO DECREASED [None]
  - MOOD SWINGS [None]
  - NAUSEA [None]
  - PARAESTHESIA [None]
  - SENSORY DISTURBANCE [None]
